FAERS Safety Report 4568275-6 (Version None)
Quarter: 2005Q1

REPORT INFORMATION
  Report Type: 
  Country: None (occurrence: None)
  Receive Date: 20050118
  Receipt Date: 20041021
  Transmission Date: 20050727
  Serious: Yes (Hospitalization)
  Sender: FDA-Public Use
  Company Number: HQWYE014825OCT04

PATIENT
  Age: 56 Year
  Sex: Female
  Weight: 63.56 kg

DRUGS (2)
  1. PREMPRO [Suspect]
     Indication: MENOMETRORRHAGIA
     Dosage: 0.625MG/ UNKNOWN TABLET DAILY, ORAL
     Route: 048
     Dates: start: 19900101, end: 20010101
  2. SYNTHROID [Concomitant]

REACTIONS (2)
  - CEREBROVASCULAR ACCIDENT [None]
  - WEIGHT DECREASED [None]
